FAERS Safety Report 15537330 (Version 2)
Quarter: 2018Q4

REPORT INFORMATION
  Report Type: Spontaneous
  Country: US (occurrence: US)
  Receive Date: 20181022
  Receipt Date: 20181227
  Transmission Date: 20190205
  Serious: Yes (Other)
  Sender: FDA-Public Use
  Company Number: US-ROCHE-2200636

PATIENT
  Age: 10 Year
  Sex: Male
  Weight: 27 kg

DRUGS (3)
  1. ZELBORAF [Suspect]
     Active Substance: VEMURAFENIB
     Dosage: AM
     Route: 048
     Dates: start: 20180727, end: 20180928
  2. ZELBORAF [Suspect]
     Active Substance: VEMURAFENIB
     Indication: BRAIN NEOPLASM MALIGNANT
     Dosage: DAILY , 2 TABLETS IN THE AM AND 1.5
     Route: 048
     Dates: start: 20180723
  3. ZELBORAF [Suspect]
     Active Substance: VEMURAFENIB
     Dosage: PM
     Route: 048
     Dates: start: 20180727, end: 20180928

REACTIONS (12)
  - Intentional product use issue [Unknown]
  - Arthralgia [Not Recovered/Not Resolved]
  - Off label use [Unknown]
  - Mental impairment [Unknown]
  - Mouth ulceration [Recovered/Resolved]
  - Decreased appetite [Recovering/Resolving]
  - Diarrhoea [Recovered/Resolved]
  - Blood creatinine increased [Recovered/Resolved]
  - Blood bilirubin increased [Recovered/Resolved]
  - Ocular icterus [Unknown]
  - Pyrexia [Recovered/Resolved]
  - Rash [Recovered/Resolved]

NARRATIVE: CASE EVENT DATE: 20180801
